FAERS Safety Report 25425166 (Version 1)
Quarter: 2025Q2

REPORT INFORMATION
  Report Type: Spontaneous
  Country: US (occurrence: US)
  Receive Date: 20250611
  Receipt Date: 20250611
  Transmission Date: 20250717
  Serious: Yes (Other)
  Sender: MYLAN
  Company Number: US-MYLANLABS-2025M1048660

PATIENT
  Age: 5 Decade
  Sex: Female

DRUGS (4)
  1. OCTREOTIDE [Suspect]
     Active Substance: OCTREOTIDE
     Indication: Product used for unknown indication
  2. OCTREOTIDE [Suspect]
     Active Substance: OCTREOTIDE
     Route: 065
  3. OCTREOTIDE [Suspect]
     Active Substance: OCTREOTIDE
     Route: 065
  4. OCTREOTIDE [Suspect]
     Active Substance: OCTREOTIDE

REACTIONS (2)
  - Pancreatitis acute [Unknown]
  - Drug ineffective [Unknown]
